FAERS Safety Report 5113214-2 (Version None)
Quarter: 2006Q3

REPORT INFORMATION
  Report Type: 
  Country: None (occurrence: None)
  Receive Date: 20060920
  Receipt Date: 20060905
  Transmission Date: 20061208
  Serious: Yes (Hospitalization, Other)
  Sender: FDA-Public Use
  Company Number: US200609000759

PATIENT
  Age: 82 Year
  Sex: Female

DRUGS (2)
  1. HUMALOG MIX 75/25 [Suspect]
     Indication: DIABETES MELLITUS
  2. HUMALOG MIX 25L/75NPL PEN (HUMALOG MIX 25L / 75NPL PEN) PEN, DISPOSABL [Concomitant]

REACTIONS (8)
  - ARTHRALGIA [None]
  - DYSSTASIA [None]
  - FALL [None]
  - FOOT FRACTURE [None]
  - HEARING IMPAIRED [None]
  - HIP FRACTURE [None]
  - JOINT SPRAIN [None]
  - PHARMACEUTICAL PRODUCT COMPLAINT [None]
